FAERS Safety Report 6791586-0 (Version None)
Quarter: 2010Q2

REPORT INFORMATION
  Report Type: 
  Country: None (occurrence: None)
  Receive Date: 20100624
  Receipt Date: 20090618
  Transmission Date: 20101027
  Serious: Yes (Other)
  Sender: FDA-Public Use
  Company Number: US-PFIZER INC-2008058170

PATIENT
  Sex: Female
  Weight: 86 kg

DRUGS (8)
  1. PROVERA [Suspect]
     Indication: HORMONE REPLACEMENT THERAPY
     Dosage: UNK
     Route: 048
     Dates: end: 19950101
  2. PROVERA [Suspect]
     Indication: MENOPAUSE
  3. PREMARIN [Suspect]
     Indication: HORMONE REPLACEMENT THERAPY
     Dosage: UNK
     Dates: end: 19950101
  4. PREMARIN [Suspect]
     Indication: MENOPAUSE
  5. PREMPRO [Suspect]
     Indication: HORMONE REPLACEMENT THERAPY
     Dosage: 0.625/2.5MG
     Dates: start: 19950101, end: 20030301
  6. PREMPRO [Suspect]
     Indication: MENOPAUSE
  7. IBUPROFEN [Concomitant]
     Indication: ARTHRITIS
     Dosage: 600 MG, UNK
     Dates: end: 20040101
  8. MECLOFENAMATE SODIUM [Concomitant]
     Indication: ARTHRITIS
     Dosage: UNK
     Dates: end: 20070101

REACTIONS (1)
  - BREAST CANCER FEMALE [None]
